FAERS Safety Report 17367209 (Version 1)
Quarter: 2020Q1

REPORT INFORMATION
  Report Type: Spontaneous
  Country: GR (occurrence: GR)
  Receive Date: 20200204
  Receipt Date: 20200204
  Transmission Date: 20200409
  Serious: Yes (Hospitalization, Other)
  Sender: FDA-Public Use
  Company Number: GR-PFIZER INC-2020043125

PATIENT
  Age: 92 Year
  Sex: Male
  Weight: 90 kg

DRUGS (2)
  1. CELEBREX [Suspect]
     Active Substance: CELECOXIB
     Indication: OSTEOARTHROPATHY
     Dosage: 1 DF, DAILY
  2. CELEBREX [Suspect]
     Active Substance: CELECOXIB
     Dosage: 1 DF, EVERY 12 HOURS
     Route: 048
     Dates: start: 20060313, end: 20060318

REACTIONS (2)
  - Generalised tonic-clonic seizure [Recovered/Resolved]
  - Pain [Unknown]

NARRATIVE: CASE EVENT DATE: 20060318
